FAERS Safety Report 21792968 (Version 1)
Quarter: 2022Q4

REPORT INFORMATION
  Report Type: Spontaneous
  Country: FR (occurrence: FR)
  Receive Date: 20221229
  Receipt Date: 20221229
  Transmission Date: 20230113
  Serious: Yes (Other)
  Sender: FDA-Public Use
  Company Number: FR-ALKEM LABORATORIES LIMITED-DE-ALKEM-2022-10675

PATIENT
  Age: 7 Month
  Sex: Female

DRUGS (5)
  1. SIROLIMUS [Suspect]
     Active Substance: SIROLIMUS
     Indication: Lymphatic disorder
     Dosage: 0.05 MILLIGRAM/KILOGRAM, BID (TWICE DAILY AT THE DOSAGE OF 0.1 MG PER KG PER DAY)
     Route: 048
  2. DOXYCYCLINE [Concomitant]
     Active Substance: DOXYCYCLINE
     Indication: Sclerotherapy
     Dosage: 200 MILLIGRAM
  3. DOXYCYCLINE [Concomitant]
     Active Substance: DOXYCYCLINE
     Dosage: 186 MILLIGRAM
  4. DOXYCYCLINE [Concomitant]
     Active Substance: DOXYCYCLINE
     Dosage: 100 MILLIGRAM
  5. BLEOMYCIN [Concomitant]
     Active Substance: BLEOMYCIN SULFATE
     Indication: Sclerotherapy
     Dosage: 0.5 MILLIGRAM/KILOGRAM
     Route: 065

REACTIONS (5)
  - Enterobacter pneumonia [Recovered/Resolved]
  - Cellulitis [Recovered/Resolved]
  - Pyelonephritis [Recovered/Resolved]
  - Infection [Recovered/Resolved]
  - Dyslipidaemia [Unknown]
